FAERS Safety Report 8331679 (Version 3)
Quarter: 2014Q1

REPORT INFORMATION
  Report Type: Spontaneous
  Country: US (occurrence: None)
  Receive Date: 20120104
  Receipt Date: 20140212
  Transmission Date: 20141002
  Serious: Yes (Other)
  Sender: FDA-Public Use
  Company Number: JPI-P-018742

PATIENT
  Age: 66 Year
  Sex: Female
  Weight: 113.4 kg

DRUGS (10)
  1. XYREM [Suspect]
     Indication: CATAPLEXY
     Dosage: 3 GM (1.5 GM,2 IN 1 D),ORAL,9 GM (4.5 GM,2 IN 1 D),ORAL, 9 GM (4.5 GM,RESTARTED AFTER SURGERY),ORAL
     Route: 048
     Dates: start: 20100506
  2. MODAFINIL [Concomitant]
  3. GLIMEPIRIDE [Concomitant]
  4. PIOGLITAZONE HYDROCHLORIDE [Concomitant]
  5. PROPRANOLOL [Concomitant]
  6. RAMIPRIL [Concomitant]
  7. VENLAFAXINE [Concomitant]
  8. LEVOTHYROXINE [Concomitant]
  9. ASPIRIN [Concomitant]
  10. COLESEVELAM HYDROCHLORIDE [Concomitant]

REACTIONS (3)
  - Hepatic cirrhosis [None]
  - Eye movement disorder [None]
  - Feeling abnormal [None]
